FAERS Safety Report 7945080-1 (Version None)
Quarter: 2011Q4

REPORT INFORMATION
  Report Type: 
  Country: None (occurrence: None)
  Receive Date: 20111129
  Receipt Date: 20111124
  Transmission Date: 20120403
  Serious: No
  Sender: FDA-Public Use
  Company Number: US-TEVA-310957USA

PATIENT
  Sex: Female
  Weight: 48.124 kg

DRUGS (2)
  1. PLAN B ONE-STEP [Suspect]
     Indication: POST COITAL CONTRACEPTION
     Dosage: 1.5 MILLIGRAM;
     Route: 048
     Dates: start: 20111123, end: 20111123
  2. MIDOL EXTENDED RELIEF CAPLETS [Concomitant]
     Indication: ABDOMINAL PAIN

REACTIONS (2)
  - MENSTRUATION IRREGULAR [None]
  - ABDOMINAL PAIN [None]
